FAERS Safety Report 5408262-9 (Version None)
Quarter: 2007Q3

REPORT INFORMATION
  Report Type: 
  Country: None (occurrence: None)
  Receive Date: 20070806
  Receipt Date: 20070806
  Transmission Date: 20080115
  Serious: Yes (Hospitalization)
  Sender: FDA-Public Use
  Company Number: None

PATIENT
  Age: 86 Year
  Sex: Male
  Weight: 84.7319 kg

DRUGS (1)
  1. CLOPIDOGREL [Suspect]
     Dosage: 75MG EVERY DAY PO
     Route: 048
     Dates: start: 20000612, end: 20070520

REACTIONS (3)
  - DUODENAL ULCER [None]
  - GASTRIC HAEMORRHAGE [None]
  - NECROSIS [None]
